FAERS Safety Report 5849250-8 (Version None)
Quarter: 2008Q3

REPORT INFORMATION
  Report Type: 
  Country: None (occurrence: None)
  Receive Date: 20080815
  Receipt Date: 20080731
  Transmission Date: 20090109
  Serious: Yes (Other)
  Sender: FDA-Public Use
  Company Number: PAR_02288_2008

PATIENT

DRUGS (2)
  1. MEGESTROL ACETATE [Suspect]
     Indication: DEMENTIA
     Dosage: (800 MG QD ORAL)
     Route: 048
     Dates: start: 20080101
  2. MEGESTROL ACETATE [Suspect]
     Indication: WEIGHT DECREASED
     Dosage: (800 MG QD ORAL)
     Route: 048
     Dates: start: 20080101

REACTIONS (1)
  - THROMBOSIS [None]
